FAERS Safety Report 5197302-0 (Version None)
Quarter: 2007Q1

REPORT INFORMATION
  Report Type: 
  Country: None (occurrence: None)
  Receive Date: 20070103
  Receipt Date: 20061222
  Transmission Date: 20070707
  Serious: Yes (Other)
  Sender: FDA-Public Use
  Company Number: US-AMGEN-US204574

PATIENT
  Sex: Female

DRUGS (3)
  1. ARANESP [Suspect]
     Indication: ANAEMIA OF MALIGNANT DISEASE
     Dates: start: 20060801, end: 20061220
  2. TAXOL [Concomitant]
     Dates: end: 20061101
  3. CARBOPLATIN [Concomitant]
     Dates: end: 20061101

REACTIONS (1)
  - HAEMOGLOBIN INCREASED [None]
